FAERS Safety Report 18430901 (Version 1)
Quarter: 2020Q4

REPORT INFORMATION
  Report Type: Spontaneous
  Country: US (occurrence: US)
  Receive Date: 20201026
  Receipt Date: 20201026
  Transmission Date: 20210114
  Serious: Yes (Hospitalization)
  Sender: FDA-Public Use
  Company Number: None

PATIENT
  Age: 49 Year
  Sex: Female
  Weight: 75 kg

DRUGS (18)
  1. CIPROFLOXACIN. [Concomitant]
     Active Substance: CIPROFLOXACIN
     Dates: start: 20200709, end: 20200719
  2. AZITHROMYCIN ANHYDROUS. [Concomitant]
     Active Substance: AZITHROMYCIN ANHYDROUS
     Dates: start: 20200731, end: 20200805
  3. AMOXICILLIN 875 MG BID [Concomitant]
     Dates: start: 20200709, end: 20200719
  4. NITROFURANTOIN 100 MG BID [Concomitant]
     Dates: start: 20200715, end: 20200729
  5. ISOSORBIDE MONONITRATE 30 MG [Concomitant]
     Dates: start: 20190625
  6. PREDNISONE 10 MG [Concomitant]
     Active Substance: PREDNISONE
     Dates: start: 20181224
  7. METOPROLOL 25 MG BID [Concomitant]
     Dates: start: 20170729
  8. PRASUGREL 10 MG [Concomitant]
     Active Substance: PRASUGREL
     Dates: start: 20170905
  9. COLCHICINE 0.6 MG [Concomitant]
     Dates: start: 20200813, end: 20200912
  10. RANOLAZINE 500 MG ER [Concomitant]
     Dates: start: 20171205
  11. XELJANZ [Suspect]
     Active Substance: TOFACITINIB CITRATE
     Indication: RHEUMATOID ARTHRITIS
     Route: 048
  12. AMLODIPINE [Concomitant]
     Active Substance: AMLODIPINE BESYLATE
     Dates: start: 20171129
  13. NYSTATIN. [Concomitant]
     Active Substance: NYSTATIN
     Dates: start: 20200825
  14. MECLIZINE 25 MG [Concomitant]
     Dates: start: 20200627, end: 20200630
  15. ASPIRIN 81 MG [Concomitant]
     Active Substance: ASPIRIN
     Dates: start: 20170905
  16. VALACYCLOVIR 1 G BID [Concomitant]
     Dates: start: 20200724, end: 20200730
  17. DOXYCYCLINE. [Concomitant]
     Active Substance: DOXYCYCLINE
     Dates: start: 20200605, end: 20200615
  18. ROSUVASTATIN 40 MG [Concomitant]
     Active Substance: ROSUVASTATIN
     Dates: start: 20170731

REACTIONS (10)
  - Dysarthria [None]
  - Mental status changes [None]
  - Muscular weakness [None]
  - Progressive multifocal leukoencephalopathy [None]
  - Urinary tract infection [None]
  - Pyelonephritis [None]
  - Confusional state [None]
  - Immune reconstitution inflammatory syndrome [None]
  - Pyrexia [None]
  - Facial paralysis [None]

NARRATIVE: CASE EVENT DATE: 20200815
